FAERS Safety Report 7263912-X (Version None)
Quarter: 2011Q1

REPORT INFORMATION
  Report Type: 
  Country: None (occurrence: None)
  Receive Date: 20110130
  Receipt Date: 20101208
  Transmission Date: 20110831
  Serious: No
  Sender: FDA-Public Use
  Company Number: US-ABBOTT-10P-163-0690234-00

PATIENT
  Sex: Female

DRUGS (6)
  1. HUMIRA [Suspect]
     Indication: RHEUMATOID ARTHRITIS
     Route: 058
     Dates: start: 20100501
  2. METHOTREXATE [Suspect]
     Indication: RHEUMATOID ARTHRITIS
  3. FLOVENT [Concomitant]
     Indication: ASTHMA
     Route: 055
  4. CLONIDINE [Concomitant]
     Indication: HYPERTENSION
     Dosage: 1/2 TAB IN MORING AND 1 TAB AT NIGHT
  5. AVAPRO [Concomitant]
     Indication: HYPERTENSION
  6. HYDROCHLOROTHIAZIDE [Concomitant]
     Indication: HYPERTENSION

REACTIONS (6)
  - PRODUCTIVE COUGH [None]
  - ABDOMINAL DISTENSION [None]
  - DISCOMFORT [None]
  - SINUSITIS [None]
  - DYSPNOEA [None]
  - WEIGHT INCREASED [None]
